FAERS Safety Report 8530876-8 (Version None)
Quarter: 2012Q3

REPORT INFORMATION
  Report Type: 
  Country: None (occurrence: None)
  Receive Date: 20120723
  Receipt Date: 20120716
  Transmission Date: 20120928
  Serious: Yes (Hospitalization, Other)
  Sender: FDA-Public Use
  Company Number: US-009507513-1109USA00698

PATIENT

DRUGS (4)
  1. FOSAMAX PLUS D [Suspect]
     Indication: OSTEOPOROSIS
     Dosage: 70 MG, QW
     Route: 048
     Dates: start: 20050908, end: 20091001
  2. CALCIUM (UNSPECIFIED) (+) VITAMIN D (UNSPECIFIED) [Concomitant]
     Dosage: 1260 MG, QD
     Route: 048
     Dates: start: 20041201
  3. FOSAMAX [Suspect]
     Indication: OSTEOPOROSIS
     Dosage: 70 MG, QW
     Route: 048
     Dates: start: 20041206, end: 20050801
  4. MK-9278 [Concomitant]
     Dosage: 630 MG, QD
     Route: 048
     Dates: start: 20041201

REACTIONS (42)
  - URINARY TRACT INFECTION [None]
  - ABDOMINAL PAIN LOWER [None]
  - DECREASED APPETITE [None]
  - FALL [None]
  - HYPOKALAEMIA [None]
  - HYPOPHAGIA [None]
  - PERSONALITY CHANGE [None]
  - LIPOMA [None]
  - PELVIC ABSCESS [None]
  - CONTUSION [None]
  - LOSS OF CONSCIOUSNESS [None]
  - OSTEOPENIA [None]
  - COUGH [None]
  - BLOOD CHOLESTEROL INCREASED [None]
  - BLOOD TRIGLYCERIDES INCREASED [None]
  - PAIN IN EXTREMITY [None]
  - CONSTIPATION [None]
  - HYPERTENSION [None]
  - HIATUS HERNIA [None]
  - DEHYDRATION [None]
  - WEIGHT DECREASED [None]
  - SPINAL OSTEOARTHRITIS [None]
  - EXOSTOSIS [None]
  - MACULAR DEGENERATION [None]
  - PELVIC ADHESIONS [None]
  - VOMITING [None]
  - FEMUR FRACTURE [None]
  - TYPE 2 DIABETES MELLITUS [None]
  - ARTHRITIS [None]
  - URINARY TRACT DISORDER [None]
  - CRANIOCEREBRAL INJURY [None]
  - NAUSEA [None]
  - DEVICE FAILURE [None]
  - DUODENITIS [None]
  - LUNG DISORDER [None]
  - OVARIAN FIBROMA [None]
  - DUODENAL POLYP [None]
  - BRADYCARDIA [None]
  - GASTROOESOPHAGEAL REFLUX DISEASE [None]
  - WEIGHT INCREASED [None]
  - OSTEOARTHRITIS [None]
  - DEPRESSION [None]
